FAERS Safety Report 5558106-X (Version None)
Quarter: 2007Q4

REPORT INFORMATION
  Report Type: 
  Country: None (occurrence: None)
  Receive Date: 20071214
  Receipt Date: 20071211
  Transmission Date: 20080405
  Serious: Yes (Hospitalization)
  Sender: FDA-Public Use
  Company Number: FR-ASTRAZENECA-2007CG01758

PATIENT
  Age: 80 Year
  Sex: Male

DRUGS (2)
  1. CASODEX [Suspect]
     Indication: PROSTATE CANCER
     Route: 048
     Dates: start: 20060801, end: 20061001
  2. CASODEX [Suspect]
     Route: 048
     Dates: start: 20070309, end: 20070401

REACTIONS (2)
  - MUSCLE SPASMS [None]
  - MYALGIA [None]
